FAERS Safety Report 10248469 (Version 3)
Quarter: 2014Q2

REPORT INFORMATION
  Report Type: Spontaneous
  Country: JP (occurrence: JP)
  Receive Date: 20140620
  Receipt Date: 20140626
  Transmission Date: 20141212
  Serious: Yes (Hospitalization)
  Sender: FDA-Public Use
  Company Number: JP-BRISTOL-MYERS SQUIBB COMPANY-20798831

PATIENT
  Age: 81 Year
  Sex: Female
  Weight: 67.8 kg

DRUGS (5)
  1. ELIQUIS [Suspect]
     Dosage: TABLET
     Route: 048
     Dates: start: 20140303, end: 20140503
  2. WARFARIN SODIUM [Suspect]
  3. THYRADIN S [Concomitant]
     Dosage: TABS
     Route: 048
     Dates: start: 1974
  4. TAKEPRON [Concomitant]
     Indication: EMBOLIC STROKE
     Dosage: TABS
     Route: 048
     Dates: start: 1974
  5. BLOPRESS [Concomitant]
     Route: 048
     Dates: start: 1974

REACTIONS (1)
  - Blood creatine phosphokinase increased [Unknown]
